FAERS Safety Report 8451878-6 (Version None)
Quarter: 2012Q2

REPORT INFORMATION
  Report Type: 
  Country: None (occurrence: None)
  Receive Date: 20120620
  Receipt Date: 20120322
  Transmission Date: 20120825
  Serious: No
  Sender: FDA-Public Use
  Company Number: US-VERTEX PHARMACEUTICALS INC.-AE-2012-004172

PATIENT
  Sex: Female
  Weight: 70.37 kg

DRUGS (8)
  1. PEGASYS [Concomitant]
     Indication: HEPATITIS C
     Route: 058
     Dates: start: 20120306
  2. RIBAVIRIN [Concomitant]
     Indication: HEPATITIS C
     Route: 048
     Dates: start: 20120306
  3. TOPROL-XL [Concomitant]
     Route: 048
  4. DIOVAN 320/25 MG [Concomitant]
     Route: 048
  5. LOTREL 10/40 MG [Concomitant]
     Route: 048
  6. MEXILETINE HYDROCHLORIDE [Concomitant]
     Route: 048
  7. INCIVEK [Suspect]
     Indication: HEPATITIS C
     Route: 048
     Dates: start: 20120306
  8. LORAZEPAM [Concomitant]
     Route: 048

REACTIONS (1)
  - PALPITATIONS [None]
